FAERS Safety Report 8532637-2 (Version None)
Quarter: 2012Q3

REPORT INFORMATION
  Report Type: 
  Country: None (occurrence: None)
  Receive Date: 20120724
  Receipt Date: 20120712
  Transmission Date: 20120928
  Serious: Yes (Death, Other)
  Sender: FDA-Public Use
  Company Number: US-BRISTOL-MYERS SQUIBB COMPANY-16147159

PATIENT

DRUGS (1)
  1. YERVOY [Suspect]
     Indication: METASTATIC MALIGNANT MELANOMA
     Dosage: RECEIVED 3 DOSES

REACTIONS (4)
  - GASTROINTESTINAL PERFORATION [None]
  - DEATH [None]
  - LIVER FUNCTION TEST ABNORMAL [None]
  - HYPOTENSION [None]
